FAERS Safety Report 12293215 (Version 2)
Quarter: 2019Q4

REPORT INFORMATION
  Report Type: Spontaneous
  Country: CA (occurrence: CA)
  Receive Date: 20160421
  Receipt Date: 20191031
  Transmission Date: 20200122
  Serious: Yes (Hospitalization, Other)
  Sender: FDA-Public Use
  Company Number: CA-ACTELION-A-NJ2016-134778

PATIENT
  Age: 65 Year
  Sex: Female

DRUGS (2)
  1. REVATIO [Suspect]
     Active Substance: SILDENAFIL CITRATE
     Indication: PULMONARY HYPERTENSION
     Dosage: 20 MG, TID
     Route: 065
     Dates: start: 201404
  2. OPSUMIT [Suspect]
     Active Substance: MACITENTAN
     Indication: PULMONARY HYPERTENSION
     Dosage: 10 MG, QD
     Route: 048
     Dates: start: 201404

REACTIONS (2)
  - Device related infection [Unknown]
  - Dialysis [Unknown]

NARRATIVE: CASE EVENT DATE: 20151104
